FAERS Safety Report 19496180 (Version 1)
Quarter: 2021Q3

REPORT INFORMATION
  Report Type: Spontaneous
  Country: US (occurrence: US)
  Receive Date: 20210701
  Receipt Date: 20210701
  Transmission Date: 20211014
  Serious: Yes (Hospitalization, Disabling)
  Sender: FDA-Public Use
  Company Number: None

PATIENT
  Age: 65 Year
  Sex: Female
  Weight: 69.75 kg

DRUGS (17)
  1. CPAP MACHINE [Concomitant]
  2. CLONAZAPAM [Concomitant]
     Active Substance: CLONAZEPAM
  3. VITAMIN D [Concomitant]
     Active Substance: VITAMIN D NOS
  4. CALCIUM/MAGNESIUM/ZINC [Concomitant]
  5. BUTALBITOL [Concomitant]
  6. BUPRENORPHINE(FOR PAIN) [Concomitant]
  7. TIZANADINE [Concomitant]
     Active Substance: TIZANIDINE
  8. VITAMIN C [Concomitant]
     Active Substance: ASCORBIC ACID
  9. HYDROCORTISONE 5 MG TABLET [Suspect]
     Active Substance: HYDROCORTISONE
     Indication: ADDISON^S DISEASE
     Dosage: ?          QUANTITY:1 TABLET(S);OTHER FREQUENCY:2 QAM?1 QPM VARIES;?
     Route: 048
  10. GABAPENTIN. [Concomitant]
     Active Substance: GABAPENTIN
  11. FLUOXETINE [Concomitant]
     Active Substance: FLUOXETINE HYDROCHLORIDE
  12. LICORICE EXTRACT [Concomitant]
  13. LEVOTHYROXINE. [Concomitant]
     Active Substance: LEVOTHYROXINE
  14. VITAMIN B [Concomitant]
     Active Substance: VITAMIN B
  15. DULCOLAX PRN [Concomitant]
  16. HYDROCORTISONE. [Concomitant]
     Active Substance: HYDROCORTISONE
  17. TRAZODONE [Concomitant]
     Active Substance: TRAZODONE HYDROCHLORIDE

REACTIONS (7)
  - Myalgia [None]
  - Product substitution issue [None]
  - Weight increased [None]
  - Nausea [None]
  - Headache [None]
  - Gastrooesophageal reflux disease [None]
  - Fatigue [None]

NARRATIVE: CASE EVENT DATE: 20201001
